FAERS Safety Report 6076289-2 (Version None)
Quarter: 2009Q1

REPORT INFORMATION
  Report Type: 
  Country: None (occurrence: None)
  Receive Date: 20090212
  Receipt Date: 20090205
  Transmission Date: 20090719
  Serious: Yes (Other)
  Sender: FDA-Public Use
  Company Number: FR-AMGEN-UK282535

PATIENT
  Age: 71 Year
  Sex: Female
  Weight: 65 kg

DRUGS (12)
  1. MIMPARA [Suspect]
     Indication: HYPERPARATHYROIDISM SECONDARY
     Route: 048
     Dates: start: 20070509
  2. MIMPARA [Suspect]
     Route: 048
     Dates: start: 20080429
  3. MIMPARA [Suspect]
     Route: 048
     Dates: start: 20080512
  4. MIMPARA [Suspect]
     Route: 048
  5. CALCIUM [Concomitant]
     Route: 065
  6. KAYEXALATE [Concomitant]
     Route: 065
  7. FONZYLANE [Concomitant]
     Route: 065
  8. TRIATEC [Concomitant]
  9. VASTEN [Concomitant]
     Route: 065
  10. KARDEGIC [Concomitant]
     Route: 065
  11. KEPPRA [Concomitant]
     Route: 065
  12. XALATAN [Concomitant]

REACTIONS (3)
  - ARTHRALGIA [None]
  - MUSCLE SPASMS [None]
  - MYALGIA [None]
